FAERS Safety Report 6531342-1 (Version None)
Quarter: 2010Q1

REPORT INFORMATION
  Report Type: 
  Country: None (occurrence: None)
  Receive Date: 20100108
  Receipt Date: 20091008
  Transmission Date: 20100710
  Serious: No
  Sender: FDA-Public Use
  Company Number: A0808543A

PATIENT
  Age: 64 Year
  Sex: Female

DRUGS (1)
  1. TYKERB [Suspect]
     Indication: DRUG USE FOR UNKNOWN INDICATION
     Dates: start: 20090909

REACTIONS (5)
  - DIARRHOEA [None]
  - FATIGUE [None]
  - NAUSEA [None]
  - PHARYNGEAL ULCERATION [None]
  - VOMITING IN PREGNANCY [None]
